FAERS Safety Report 18317331 (Version 3)
Quarter: 2020Q4

REPORT INFORMATION
  Report Type: Spontaneous
  Country: GR (occurrence: GR)
  Receive Date: 20200928
  Receipt Date: 20201012
  Transmission Date: 20210113
  Serious: Yes (Other)
  Sender: FDA-Public Use
  Company Number: GR-ROCHE-2682167

PATIENT
  Age: 68 Year
  Sex: Male

DRUGS (4)
  1. GAZYVARO [Suspect]
     Active Substance: OBINUTUZUMAB
     Indication: CHRONIC LYMPHOCYTIC LEUKAEMIA
     Dosage: 100 MG OBINUTUZUMAB IN N/S 0.9% 1,000 CC, AT AN INFUSION RATE OF 50 ML/H THE 1ST HOUR, THEN 100 ML/H
     Route: 042
     Dates: start: 20200917
  2. APOTEL [Concomitant]
     Active Substance: ACETAMINOPHEN
     Dosage: 1 AMPOULE
     Dates: start: 20200917
  3. DEXAMETHASONE. [Concomitant]
     Active Substance: DEXAMETHASONE
     Dosage: 1 AMPOULE
  4. FENISTIL [Concomitant]
     Active Substance: DIMETHINDENE
     Dosage: 1 AMPOULE
     Dates: start: 20200917

REACTIONS (8)
  - Hypotension [Unknown]
  - Tachypnoea [Unknown]
  - Chills [Unknown]
  - Aspartate aminotransferase abnormal [Unknown]
  - Pyrexia [Unknown]
  - Dyspnoea [Unknown]
  - Erythema [Unknown]
  - Transaminases abnormal [Unknown]

NARRATIVE: CASE EVENT DATE: 20200917
